FAERS Safety Report 16275452 (Version 1)
Quarter: 2019Q2

REPORT INFORMATION
  Report Type: Spontaneous
  Country: US (occurrence: US)
  Receive Date: 20190330
  Receipt Date: 20190330
  Transmission Date: 20190711
  Serious: Yes (Hospitalization)
  Sender: FDA-Public Use
  Company Number: None

PATIENT
  Age: 76 Year
  Sex: Female
  Weight: 59 kg

DRUGS (2)
  1. ARIMIDEX [Suspect]
     Active Substance: ANASTROZOLE
     Dates: end: 20190317
  2. ASPIRIN. [Concomitant]
     Active Substance: ASPIRIN

REACTIONS (11)
  - Gastritis [None]
  - Melaena [None]
  - Packed red blood cell transfusion [None]
  - Blood urea increased [None]
  - Asthenia [None]
  - Gastritis erosive [None]
  - Anaemia [None]
  - Blood glucose increased [None]
  - Duodenitis [None]
  - Tremor [None]
  - Gastric ulcer [None]

NARRATIVE: CASE EVENT DATE: 20190317
